FAERS Safety Report 9656707 (Version 1)
Quarter: 2013Q4

REPORT INFORMATION
  Report Type: Report from Study
  Country: GB (occurrence: GB)
  Receive Date: 20131030
  Receipt Date: 20131030
  Transmission Date: 20140711
  Serious: Yes (Other)
  Sender: FDA-Public Use
  Company Number: GB-ASTRAZENECA-2013SE77701

PATIENT
  Age: 48 Year
  Sex: Male

DRUGS (2)
  1. PROPOFOL [Suspect]
     Indication: SEDATION
     Dosage: 20MG INCREMENTS OF PROPOFOL, RECEIVING 100MG OVER 5 MIN.
     Route: 042
  2. SALINE [Concomitant]

REACTIONS (3)
  - Oxygen saturation decreased [Unknown]
  - Vomiting [Unknown]
  - Pulmonary oedema [Unknown]
